FAERS Safety Report 24053113 (Version 1)
Quarter: 2024Q3

REPORT INFORMATION
  Report Type: Spontaneous
  Country: GB (occurrence: None)
  Receive Date: 20240705
  Receipt Date: 20240705
  Transmission Date: 20241016
  Serious: Yes (Disabling, Other)
  Sender: ASTRAZENECA
  Company Number: 2024A149700

PATIENT
  Age: 63 Year
  Sex: Female

DRUGS (4)
  1. SYMBICORT [Suspect]
     Active Substance: BUDESONIDE\FORMOTEROL FUMARATE DIHYDRATE
     Indication: Asthma
     Dosage: 2 PUFFS TWICE DAILY- REDUCED LATER TO 1 PUFF TWICE DAILY
     Dates: start: 20240130
  2. LEVOTHYROXINE [Concomitant]
     Active Substance: LEVOTHYROXINE\LEVOTHYROXINE SODIUM
     Indication: Adverse drug reaction
     Dates: start: 2003
  3. ESOMEPRAZOLE [Concomitant]
     Active Substance: ESOMEPRAZOLE
     Indication: Abdominal pain upper
     Dates: start: 2022
  4. ESTRADIOL [Concomitant]
     Active Substance: ESTRADIOL
     Indication: Adverse drug reaction
     Dates: start: 2023

REACTIONS (1)
  - Dental caries [Not Recovered/Not Resolved]

NARRATIVE: CASE EVENT DATE: 20240401
